FAERS Safety Report 17510457 (Version 2)
Quarter: 2020Q1

REPORT INFORMATION
  Report Type: Spontaneous
  Country: IL (occurrence: IL)
  Receive Date: 20200306
  Receipt Date: 20200312
  Transmission Date: 20200409
  Serious: Yes (Other)
  Sender: FDA-Public Use
  Company Number: IL-BAXTER-2020BAX005213

PATIENT
  Age: 35 Year
  Sex: Male

DRUGS (2)
  1. HOLOXAN 2G [Suspect]
     Active Substance: IFOSFAMIDE
     Indication: SARCOMA
     Route: 065
  2. DOXIL [Suspect]
     Active Substance: DOXORUBICIN HYDROCHLORIDE
     Indication: SARCOMA
     Route: 065

REACTIONS (1)
  - Adverse drug reaction [Unknown]
